FAERS Safety Report 6764771-1 (Version None)
Quarter: 2010Q2

REPORT INFORMATION
  Report Type: 
  Country: None (occurrence: None)
  Receive Date: 20100610
  Receipt Date: 20100531
  Transmission Date: 20101027
  Serious: Yes (Other)
  Sender: FDA-Public Use
  Company Number: FR-ASTRAZENECA-2010SE25115

PATIENT
  Age: 67 Year
  Sex: Male

DRUGS (9)
  1. NEXIUM [Suspect]
     Route: 048
     Dates: start: 20050101
  2. NEORAL [Suspect]
     Route: 048
     Dates: start: 20050101
  3. CORTANCYL [Suspect]
     Route: 048
  4. ALLOPURINOL [Suspect]
     Route: 048
     Dates: start: 20050101
  5. SECTRAL [Suspect]
     Route: 048
     Dates: start: 20050101
  6. ESIDRIX [Suspect]
     Route: 048
     Dates: start: 20050101
  7. KARDEGIC [Suspect]
     Route: 048
     Dates: start: 20050101
  8. OROCAL D3 [Suspect]
     Route: 048
     Dates: start: 20050101
  9. KALEORID [Suspect]
     Dosage: 3G, 1G THREE TIMES DAILY
     Route: 048
     Dates: start: 20050101

REACTIONS (1)
  - NEUROPATHY PERIPHERAL [None]
